FAERS Safety Report 4406385-4 (Version None)
Quarter: 2004Q3

REPORT INFORMATION
  Report Type: 
  Country: None (occurrence: None)
  Receive Date: 20040723
  Receipt Date: 20030714
  Transmission Date: 20050211
  Serious: No
  Sender: FDA-Public Use
  Company Number: US-GLAXOSMITHKLINE-A0416404A

PATIENT
  Age: 59 Year
  Sex: Female

DRUGS (6)
  1. AVANDIA [Suspect]
     Dosage: 4MG PER DAY
     Route: 048
     Dates: start: 20030712
  2. TRICOR [Concomitant]
  3. HORMONE PATCH [Concomitant]
  4. LANTUS [Concomitant]
  5. DIOVAN [Concomitant]
  6. GLYNASE [Concomitant]

REACTIONS (2)
  - HEART RATE INCREASED [None]
  - NIGHT SWEATS [None]
